FAERS Safety Report 25470360 (Version 1)
Quarter: 2025Q2

REPORT INFORMATION
  Report Type: Spontaneous
  Country: AU (occurrence: AU)
  Receive Date: 20250624
  Receipt Date: 20250624
  Transmission Date: 20250717
  Serious: No
  Sender: ALKEM
  Company Number: AU-ALKEM LABORATORIES LIMITED-AU-ALKEM-2025-00099

PATIENT
  Age: 54 Year
  Sex: Female

DRUGS (4)
  1. AMLODIPINE BESYLATE [Interacting]
     Active Substance: AMLODIPINE BESYLATE
     Indication: Product used for unknown indication
     Route: 065
  2. DIETARY SUPPLEMENT [Interacting]
     Active Substance: DIETARY SUPPLEMENT
     Indication: Product used for unknown indication
     Route: 065
  3. RejuveGen (AUST L 396075) [Concomitant]
     Indication: Product used for unknown indication
     Route: 065
  4. Urox (AUST L 400655) [Concomitant]
     Indication: Product used for unknown indication
     Route: 065

REACTIONS (2)
  - Musculoskeletal discomfort [Unknown]
  - Hypertension [Unknown]
